FAERS Safety Report 5674443-2 (Version None)
Quarter: 2008Q1

REPORT INFORMATION
  Report Type: 
  Country: None (occurrence: None)
  Receive Date: 20080320
  Receipt Date: 20080314
  Transmission Date: 20080703
  Serious: Yes (Other)
  Sender: FDA-Public Use
  Company Number: US-GENENTECH-255718

PATIENT
  Sex: Female
  Weight: 66.213 kg

DRUGS (3)
  1. HERCEPTIN [Suspect]
     Indication: BREAST CANCER METASTATIC
     Dosage: 404 MG, Q3W
     Route: 042
     Dates: start: 20040601
  2. XELODA [Concomitant]
     Indication: BREAST CANCER METASTATIC
  3. ZOMETA [Concomitant]
     Indication: DRUG USE FOR UNKNOWN INDICATION
     Dosage: 4 MG, UNK
     Dates: start: 20031001

REACTIONS (3)
  - HISTOPLASMOSIS [None]
  - RESPIRATORY TRACT INFECTION FUNGAL [None]
  - WHITE BLOOD CELL COUNT DECREASED [None]
